FAERS Safety Report 7680819-4 (Version None)
Quarter: 2011Q3

REPORT INFORMATION
  Report Type: 
  Country: None (occurrence: None)
  Receive Date: 20110812
  Receipt Date: 20110810
  Transmission Date: 20111222
  Serious: Yes (Other)
  Sender: FDA-Public Use
  Company Number: GB-MERCK-1108GBR00068

PATIENT
  Sex: Female
  Weight: 70 kg

DRUGS (17)
  1. CALCIUM CARBONATE AND CHOLECALCIFEROL [Concomitant]
     Route: 065
     Dates: start: 20110621
  2. ALBUTEROL SULFATE [Concomitant]
     Route: 065
  3. VALSARTAN [Concomitant]
     Route: 065
  4. ACETAMINOPHEN AND CODEINE PHOSPHATE [Concomitant]
     Route: 065
     Dates: start: 20110720
  5. DIGOXIN [Concomitant]
     Route: 065
     Dates: start: 20110720
  6. FUROSEMIDE [Concomitant]
     Route: 065
     Dates: start: 20110720
  7. ALBUTEROL SULFATE [Concomitant]
     Route: 065
  8. INSULIN ASPART, BIPHASIC ISOPHANE [INJECTION] [Concomitant]
     Route: 065
     Dates: start: 20110720
  9. FOSAMAX [Suspect]
     Route: 048
  10. ALBUTEROL SULFATE [Concomitant]
     Route: 065
  11. BISOPROLOL [Concomitant]
     Route: 065
     Dates: start: 20110720
  12. NITROGLYCERIN [Concomitant]
     Route: 065
     Dates: start: 20110222
  13. LACTULOSE [Concomitant]
     Route: 065
     Dates: start: 20101028
  14. PRAVASTATIN SODIUM [Concomitant]
     Route: 065
  15. SPIRONOLACTONE [Concomitant]
     Route: 065
     Dates: start: 20110720
  16. WARFARIN [Concomitant]
     Route: 065
     Dates: start: 20100309
  17. LETROZOLE [Suspect]
     Indication: BREAST CANCER
     Route: 048
     Dates: start: 20100416

REACTIONS (12)
  - CARDIAC FAILURE [None]
  - DIABETES MELLITUS [None]
  - NIGHT SWEATS [None]
  - LIVER DISORDER [None]
  - RENAL DISORDER [None]
  - MUSCULOSKELETAL PAIN [None]
  - BLEPHARITIS [None]
  - MACULAR DEGENERATION [None]
  - AMNESIA [None]
  - IRRITABILITY [None]
  - ARTHRALGIA [None]
  - OEDEMA PERIPHERAL [None]
